FAERS Safety Report 18816863 (Version 2)
Quarter: 2022Q1

REPORT INFORMATION
  Report Type: Spontaneous
  Country: US (occurrence: US)
  Receive Date: 20210201
  Receipt Date: 20220328
  Transmission Date: 20220423
  Serious: No
  Sender: FDA-Public Use
  Company Number: US-JNJFOC-20210140951

PATIENT

DRUGS (1)
  1. IMODIUM [Suspect]
     Active Substance: LOPERAMIDE HYDROCHLORIDE
     Indication: Diarrhoea
     Dosage: ONE TO TWO CAPLETS DAILY; HAVE BEEN ON THIS MEDICATION FOR THE PAST 5 OR SO YEARS
     Route: 065

REACTIONS (2)
  - Product packaging difficult to open [Unknown]
  - Incorrect dose administered [Unknown]
